FAERS Safety Report 21481654 (Version 1)
Quarter: 2022Q4

REPORT INFORMATION
  Report Type: Spontaneous
  Country: CN (occurrence: CN)
  Receive Date: 20221020
  Receipt Date: 20221020
  Transmission Date: 20230113
  Serious: Yes (Other)
  Sender: FDA-Public Use
  Company Number: None

PATIENT
  Age: 65 Year
  Sex: Female
  Weight: 62 kg

DRUGS (7)
  1. CYCLOPHOSPHAMIDE [Suspect]
     Active Substance: CYCLOPHOSPHAMIDE
     Indication: Breast cancer female
     Dosage: 900 MG, QD, SECOND CHEMOTHERAPY (DILUTED WITH SODIUM CHLORIDE 45ML)
     Route: 042
     Dates: start: 20220705, end: 20220705
  2. CYCLOPHOSPHAMIDE [Suspect]
     Active Substance: CYCLOPHOSPHAMIDE
     Indication: Chemotherapy
  3. SODIUM CHLORIDE [Suspect]
     Active Substance: SODIUM CHLORIDE
     Indication: Medication dilution
     Dosage: 45 ML, QD, SECOND CHEMOTHERAPY (DILUTED IN CYCLOPHOSPHAMIDE 900 MG)
     Route: 042
     Dates: start: 20220705, end: 20220705
  4. SODIUM CHLORIDE [Suspect]
     Active Substance: SODIUM CHLORIDE
     Dosage: 100 ML, QD (DILUTED IN EPIRUBICIN HYDROCHLORIDE 124 MG)
     Route: 041
     Dates: start: 20220705, end: 20220705
  5. EPIRUBICIN [Suspect]
     Active Substance: EPIRUBICIN
     Indication: Breast cancer female
     Dosage: 124 MG, QD (DILUTED WITH SODIUM CHLORIDE 100ML)
     Route: 041
     Dates: start: 20220705, end: 20220705
  6. EPIRUBICIN [Suspect]
     Active Substance: EPIRUBICIN
     Indication: Chemotherapy
  7. GRANULOCYTE COLONY-STIMULATING FACTOR NOS [Suspect]
     Active Substance: GRANULOCYTE COLONY-STIMULATING FACTOR NOS
     Indication: Breast cancer female
     Dosage: 3 MG, SECOND DAY
     Route: 058
     Dates: start: 20220706

REACTIONS (2)
  - White blood cell count decreased [Recovered/Resolved]
  - Agranulocytosis [Recovered/Resolved]

NARRATIVE: CASE EVENT DATE: 20220713
